FAERS Safety Report 9245356 (Version 2)
Quarter: 2013Q2

REPORT INFORMATION
  Report Type: Spontaneous
  Country: US (occurrence: US)
  Receive Date: 20130422
  Receipt Date: 20130529
  Transmission Date: 20140414
  Serious: No
  Sender: FDA-Public Use
  Company Number: US-PFIZER INC-2013125382

PATIENT
  Age: 78 Year
  Sex: Male
  Weight: 99.77 kg

DRUGS (7)
  1. LYRICA [Suspect]
     Indication: LIMB DISCOMFORT
     Dosage: 50 MG, 2X/DAY
     Route: 048
     Dates: start: 20130311
  2. LYRICA [Suspect]
     Indication: PARAESTHESIA
     Dosage: 50 MG, 3X/DAY
     Route: 048
     Dates: start: 20130315
  3. LYRICA [Suspect]
     Indication: PAIN IN EXTREMITY
     Dosage: 100 MG, 3X/DAY
  4. LYRICA [Suspect]
     Indication: PAIN IN EXTREMITY
  5. VASOTEC [Concomitant]
     Indication: HYPERTENSION
     Dosage: 5 MG, 2X/DAY
  6. SYNTHROID [Concomitant]
     Indication: HYPOTHYROIDISM
     Dosage: 5 MG, 2X/DAY
  7. ZOCOR [Concomitant]
     Indication: BLOOD CHOLESTEROL INCREASED
     Dosage: 20 MG, 1X/DAY

REACTIONS (2)
  - Intentional drug misuse [Unknown]
  - Drug ineffective [Unknown]
